FAERS Safety Report 4579487-X (Version None)
Quarter: 2005Q1

REPORT INFORMATION
  Report Type: 
  Country: None (occurrence: None)
  Receive Date: 20050209
  Receipt Date: 20040325
  Transmission Date: 20050727
  Serious: Yes (Hospitalization)
  Sender: FDA-Public Use
  Company Number: 05-025

PATIENT
  Age: 63 Year
  Sex: Female

DRUGS (6)
  1. CAPOTEN [Suspect]
     Dosage: ORAL
     Route: 048
  2. MODURETIC 5-50 [Concomitant]
  3. DIAMICRON [Concomitant]
  4. GLUPHAGE 500 MG [Concomitant]
  5. GLICLAZIDE [Concomitant]
  6. METFORMIN HCL [Concomitant]

REACTIONS (1)
  - PANCREATITIS ACUTE [None]
